FAERS Safety Report 16629095 (Version 2)
Quarter: 2019Q3

REPORT INFORMATION
  Report Type: Spontaneous
  Country: CN (occurrence: CN)
  Receive Date: 20190725
  Receipt Date: 20190801
  Transmission Date: 20191004
  Serious: Yes (Hospitalization)
  Sender: FDA-Public Use
  Company Number: CN-EISAI MEDICAL RESEARCH-EC-2019-059488

PATIENT
  Age: 58 Year
  Sex: Male
  Weight: 67.5 kg

DRUGS (6)
  1. IDEBENONE [Suspect]
     Active Substance: IDEBENONE
     Route: 048
     Dates: start: 20190719
  2. DONEPEZIL. [Suspect]
     Active Substance: DONEPEZIL
     Route: 048
     Dates: start: 20190719
  3. IDEBENONE [Suspect]
     Active Substance: IDEBENONE
     Indication: CEREBRAL INFARCTION
     Route: 048
     Dates: start: 20160101, end: 20190716
  4. BUSPIRONE HYDROCHLORIDE. [Suspect]
     Active Substance: BUSPIRONE HYDROCHLORIDE
     Dates: start: 20190719
  5. DONEPEZIL. [Suspect]
     Active Substance: DONEPEZIL
     Indication: CEREBELLAR ATROPHY
     Route: 048
     Dates: start: 20160101, end: 20190716
  6. BUSPIRONE HYDROCHLORIDE. [Suspect]
     Active Substance: BUSPIRONE HYDROCHLORIDE
     Indication: ANXIETY
     Dates: start: 20160101, end: 20190716

REACTIONS (1)
  - Oedema peripheral [Recovered/Resolved]

NARRATIVE: CASE EVENT DATE: 20190709
